FAERS Safety Report 4814251-5 (Version None)
Quarter: 2005Q4

REPORT INFORMATION
  Report Type: 
  Country: None (occurrence: None)
  Receive Date: 20051028
  Receipt Date: 20050726
  Transmission Date: 20060501
  Serious: No
  Sender: FDA-Public Use
  Company Number: US-GLAXOSMITHKLINE-A0567734A

PATIENT
  Age: 71 Year
  Sex: Female

DRUGS (12)
  1. ADVAIR DISKUS 100/50 [Suspect]
     Indication: ASTHMA
     Dosage: 1PUFF TWICE PER DAY
     Route: 055
     Dates: start: 20050101
  2. CLINDEX [Concomitant]
  3. GLUCOSAMINE CHONDROITIN [Concomitant]
  4. ZANTAC [Concomitant]
  5. PAXIL [Concomitant]
  6. FLONASE [Concomitant]
  7. AZMACORT [Concomitant]
  8. VITAMIN E [Concomitant]
  9. LEVOXYL [Concomitant]
  10. CALCIUM GLUCONATE [Concomitant]
  11. DETROL LA [Concomitant]
  12. ESTRACE [Concomitant]

REACTIONS (2)
  - COUGH [None]
  - WHEEZING [None]
